FAERS Safety Report 4958183-0 (Version None)
Quarter: 2006Q1

REPORT INFORMATION
  Report Type: 
  Country: None (occurrence: None)
  Receive Date: 20060330
  Receipt Date: 20060320
  Transmission Date: 20060701
  Serious: Yes (Other)
  Sender: FDA-Public Use
  Company Number: GB-GILEAD-2006-0009345

PATIENT
  Sex: Male

DRUGS (3)
  1. VIREAD [Suspect]
  2. KALETRA [Concomitant]
  3. ABACAVIR [Concomitant]

REACTIONS (6)
  - BLOOD ALKALINE PHOSPHATASE INCREASED [None]
  - MYOCARDIAL INFARCTION [None]
  - OSTEOPENIA [None]
  - RENAL FAILURE ACUTE [None]
  - RENAL IMPAIRMENT [None]
  - STRESS FRACTURE [None]
